FAERS Safety Report 6522275-5 (Version None)
Quarter: 2009Q4

REPORT INFORMATION
  Report Type: 
  Country: None (occurrence: None)
  Receive Date: 20091229
  Receipt Date: 20091229
  Transmission Date: 20100525
  Serious: No
  Sender: FDA-Public Use
  Company Number: None

PATIENT
  Age: 34 Year
  Sex: Female

DRUGS (1)
  1. INSULIN ASPART [Suspect]
     Indication: HYPERKALAEMIA
     Dosage: 10 UNITS IV X1
     Route: 042
     Dates: start: 20091104

REACTIONS (3)
  - AGITATION [None]
  - BLOOD GLUCOSE DECREASED [None]
  - HYPERHIDROSIS [None]
